FAERS Safety Report 5835113-0 (Version None)
Quarter: 2008Q3

REPORT INFORMATION
  Report Type: 
  Country: None (occurrence: None)
  Receive Date: 20080805
  Receipt Date: 20080805
  Transmission Date: 20090109
  Serious: Yes (Other)
  Sender: FDA-Public Use
  Company Number: None

PATIENT
  Age: 29 Year
  Sex: Female
  Weight: 81.6475 kg

DRUGS (1)
  1. PENICILLIN VK [Suspect]
     Indication: ABSCESS ORAL
     Dosage: 500MG Q 6 HOURS PO
     Route: 048
     Dates: start: 20080728, end: 20080802

REACTIONS (2)
  - MYALGIA [None]
  - URTICARIA [None]
